FAERS Safety Report 11343573 (Version 1)
Quarter: 2015Q3

REPORT INFORMATION
  Report Type: Spontaneous
  Country: US (occurrence: US)
  Receive Date: 20150806
  Receipt Date: 20150806
  Transmission Date: 20151125
  Serious: Yes (Hospitalization, Other)
  Sender: FDA-Public Use
  Company Number: US-AMGEN-USASP2015077790

PATIENT
  Age: 68 Year
  Sex: Male

DRUGS (2)
  1. ENBREL [Suspect]
     Active Substance: ETANERCEPT
     Indication: RHEUMATOID ARTHRITIS
     Dosage: 50 MG, QWK
     Route: 058
     Dates: start: 201406, end: 201507
  2. IBUPROFEN. [Concomitant]
     Active Substance: IBUPROFEN
     Dosage: UNK UNK, AS NECESSARY

REACTIONS (3)
  - Clostridium difficile infection [Recovered/Resolved]
  - Pneumonia [Recovered/Resolved]
  - Drug effect decreased [Unknown]

NARRATIVE: CASE EVENT DATE: 201502
